FAERS Safety Report 10736331 (Version 1)
Quarter: 2015Q1

REPORT INFORMATION
  Report Type: Spontaneous
  Country: US (occurrence: None)
  Receive Date: 20150123
  Receipt Date: 20150123
  Transmission Date: 20150721
  Serious: No
  Sender: FDA-Public Use
  Company Number: None

PATIENT
  Age: 84 Year
  Sex: Female

DRUGS (1)
  1. GABAPENTIN. [Suspect]
     Active Substance: GABAPENTIN
     Dosage: 1 QHS X 7 DAYS. IF TOLERATED AND CONTINUED DISCOMFORT, INCREASE TO 1 BID X 7 DAYS. IF TOLERATED AND CONTINUED DISCOMFORT, INCREASE TO 1 TID X 7 DAYS. IF TOLERATED AND CONTINUED DISCOMFORT, INCREASE TO 1 QID UNTIL FOLLOW UP OFFICE VISIT.

REACTIONS (2)
  - Hallucination, visual [None]
  - Abnormal behaviour [None]
